FAERS Safety Report 4517757-1 (Version None)
Quarter: 2004Q4

REPORT INFORMATION
  Report Type: 
  Country: None (occurrence: None)
  Receive Date: 20041130
  Receipt Date: 20041117
  Transmission Date: 20050328
  Serious: Yes (Hospitalization)
  Sender: FDA-Public Use
  Company Number: MEDI-0002437

PATIENT
  Age: 2 Month
  Sex: Male
  Weight: 3.1752 kg

DRUGS (3)
  1. SYNAGIS [Suspect]
     Indication: ANTIVIRAL PROPHYLAXIS
     Dosage: 50 MG, 1 IN 30 D
     Dates: start: 20041112, end: 20041112
  2. COMVAX (HAEMOPHILUS B CONJUGATE VACCINE) [Concomitant]
  3. PREVNAR (PNEUMOCOCCAL CONJUGATE VACCINE) [Concomitant]

REACTIONS (4)
  - CRYING [None]
  - EATING DISORDER [None]
  - INGUINAL HERNIA, OBSTRUCTIVE [None]
  - IRRITABILITY [None]
